FAERS Safety Report 6052068-7 (Version None)
Quarter: 2009Q1

REPORT INFORMATION
  Report Type: 
  Country: None (occurrence: None)
  Receive Date: 20090126
  Receipt Date: 20090114
  Transmission Date: 20090719
  Serious: Yes (Other)
  Sender: FDA-Public Use
  Company Number: US-WYE-H04978408

PATIENT
  Sex: Female

DRUGS (5)
  1. PREMARIN [Suspect]
  2. ESTRATAB [Suspect]
  3. ESTROGENIC SUBSTANCE [Suspect]
  4. PROVERA [Suspect]
  5. ESTRADIOL [Suspect]

REACTIONS (1)
  - BREAST CANCER RECURRENT [None]
